FAERS Safety Report 5596925-4 (Version None)
Quarter: 2007Q4

REPORT INFORMATION
  Report Type: 
  Country: None (occurrence: None)
  Receive Date: 20071220
  Receipt Date: 20071114
  Transmission Date: 20080405
  Serious: Yes (Hospitalization)
  Sender: FDA-Public Use
  Company Number: A03200706554

PATIENT
  Age: 55 Year
  Sex: Female

DRUGS (14)
  1. AMBIEN CR [Suspect]
     Indication: INSOMNIA
     Dosage: 12.5 MG QD ORAL
     Route: 048
     Dates: start: 20071027, end: 20071028
  2. LEVOTHYROXINE SODIUM [Concomitant]
  3. ESTROGENS CONJUGATED [Concomitant]
  4. CARVEDILOL [Concomitant]
  5. OXCARBAZEPINE [Concomitant]
  6. WARFARIN SODIUM [Concomitant]
  7. CETIRIZINE HCL [Concomitant]
  8. EZETIMIBE [Concomitant]
  9. MONTELUKAST SODIUM [Concomitant]
  10. LISINOPRIL [Concomitant]
  11. DIGOXIN [Concomitant]
  12. FUROSEMIDE [Concomitant]
  13. HYDROCODONE BITARTRATE [Concomitant]
  14. PRAVASTATIN [Concomitant]

REACTIONS (8)
  - AMNESIA [None]
  - ASTHENIA [None]
  - DISORIENTATION [None]
  - DYSPHAGIA [None]
  - HALLUCINATION [None]
  - NECK PAIN [None]
  - PRESYNCOPE [None]
  - SOMNOLENCE [None]
